FAERS Safety Report 13291941 (Version 2)
Quarter: 2017Q1

REPORT INFORMATION
  Report Type: Report from Study
  Country: FI (occurrence: FI)
  Receive Date: 20170303
  Receipt Date: 20170310
  Transmission Date: 20170428
  Serious: Yes (Hospitalization, Other)
  Sender: FDA-Public Use
  Company Number: FI-SA-2015SA072395

PATIENT
  Age: 42 Year
  Sex: Female
  Weight: 80.8 kg

DRUGS (6)
  1. PARATABS [Concomitant]
     Indication: DRUG THERAPY
     Route: 048
     Dates: start: 20020101
  2. LEMTRADA [Suspect]
     Active Substance: ALEMTUZUMAB
     Indication: MULTIPLE SCLEROSIS RELAPSE
     Route: 041
     Dates: start: 20150323, end: 20150327
  3. NEURONTIN [Concomitant]
     Active Substance: GABAPENTIN
     Indication: PROPHYLAXIS
     Route: 048
     Dates: start: 20020101
  4. BURANA [Concomitant]
     Active Substance: IBUPROFEN
     Indication: DRUG THERAPY
     Route: 048
     Dates: start: 20020101
  5. LEMTRADA [Suspect]
     Active Substance: ALEMTUZUMAB
     Indication: MULTIPLE SCLEROSIS RELAPSE
     Route: 041
     Dates: start: 20160321, end: 20160323
  6. HISTEC [Concomitant]
     Active Substance: CETIRIZINE HYDROCHLORIDE
     Indication: PROPHYLAXIS
     Route: 048
     Dates: start: 20150323

REACTIONS (9)
  - Tremor [Recovered/Resolved]
  - Dizziness [Recovered/Resolved]
  - Tachycardia [Recovered/Resolved]
  - Hyperthyroidism [Recovering/Resolving]
  - Gastrooesophageal reflux disease [Not Recovered/Not Resolved]
  - Urticaria [Recovered/Resolved]
  - Hepatic enzyme increased [Not Recovered/Not Resolved]
  - Alopecia [Not Recovered/Not Resolved]
  - Fatigue [Recovered/Resolved]

NARRATIVE: CASE EVENT DATE: 20150326
